FAERS Safety Report 23440924 (Version 1)
Quarter: 2024Q1

REPORT INFORMATION
  Report Type: Spontaneous
  Country: GB (occurrence: GB)
  Receive Date: 20240125
  Receipt Date: 20240125
  Transmission Date: 20240410
  Serious: Yes (Other)
  Sender: FDA-Public Use
  Company Number: None

PATIENT

DRUGS (2)
  1. ATORVASTATIN [Suspect]
     Active Substance: ATORVASTATIN
     Indication: Low density lipoprotein increased
     Dosage: AT NIGHT
     Route: 065
     Dates: start: 20231029, end: 20231112
  2. LEVOTHYROXINE [Suspect]
     Active Substance: LEVOTHYROXINE\LEVOTHYROXINE SODIUM
     Indication: Hypothyroidism
     Route: 065
     Dates: start: 2000

REACTIONS (11)
  - Peripheral swelling [Recovered/Resolved with Sequelae]
  - Cough [Recovered/Resolved]
  - Anxiety [Unknown]
  - Agitation [Recovered/Resolved]
  - Balance disorder [Unknown]
  - Drug interaction [Unknown]
  - Condition aggravated [Unknown]
  - Joint swelling [Recovered/Resolved with Sequelae]
  - Arthralgia [Recovered/Resolved]
  - Fatigue [Recovered/Resolved]
  - Dizziness [Unknown]

NARRATIVE: CASE EVENT DATE: 20231105
